FAERS Safety Report 18192196 (Version 1)
Quarter: 2020Q3

REPORT INFORMATION
  Report Type: Spontaneous
  Country: US (occurrence: US)
  Receive Date: 20200825
  Receipt Date: 20200825
  Transmission Date: 20201103
  Serious: No
  Sender: FDA-Public Use
  Company Number: None

PATIENT
  Age: 64 Year
  Sex: Male
  Weight: 160 kg

DRUGS (3)
  1. REMDESIVIR. [Suspect]
     Active Substance: REMDESIVIR
     Indication: COVID-19 PNEUMONIA
     Route: 042
     Dates: start: 20200817, end: 20200821
  2. 0.9% SODIUM CHLORIDE 230ML [Concomitant]
     Dates: start: 20200818, end: 20200821
  3. STERILE WATER FOR INJECTION 20ML [Concomitant]
     Dates: start: 20200818, end: 20200821

REACTIONS (3)
  - Paravenous drug administration [None]
  - Infusion site extravasation [None]
  - Infusion site oedema [None]

NARRATIVE: CASE EVENT DATE: 20200819
